FAERS Safety Report 5572404-5 (Version None)
Quarter: 2007Q4

REPORT INFORMATION
  Report Type: 
  Country: None (occurrence: None)
  Receive Date: 20071222
  Receipt Date: 20071210
  Transmission Date: 20080405
  Serious: Yes (Other)
  Sender: FDA-Public Use
  Company Number: DE-PFIZER INC-2007102435

PATIENT
  Sex: Female
  Weight: 90 kg

DRUGS (1)
  1. LYRICA [Suspect]
     Indication: NEURALGIA
     Route: 048

REACTIONS (1)
  - BUNDLE BRANCH BLOCK LEFT [None]
